FAERS Safety Report 8622318-9 (Version None)
Quarter: 2012Q3

REPORT INFORMATION
  Report Type: 
  Country: None (occurrence: None)
  Receive Date: 20120827
  Receipt Date: 20120815
  Transmission Date: 20120928
  Serious: Yes (Hospitalization)
  Sender: FDA-Public Use
  Company Number: US-BIOGENIDEC-2012BI023241

PATIENT
  Age: 51 Year
  Sex: Female

DRUGS (5)
  1. AVONEX [Suspect]
     Route: 030
     Dates: end: 20100706
  2. AVONEX [Suspect]
     Indication: MULTIPLE SCLEROSIS
     Route: 030
     Dates: start: 19970707, end: 20030801
  3. AVONEX [Suspect]
     Route: 030
     Dates: start: 20111115
  4. AVONEX [Suspect]
     Route: 030
     Dates: start: 20030904, end: 20040701
  5. AVONEX [Suspect]
     Route: 030
     Dates: start: 20040801

REACTIONS (4)
  - CERVICAL VERTEBRAL FRACTURE [None]
  - FALL [None]
  - BONE FRAGMENTATION [None]
  - DYSPHONIA [None]
